FAERS Safety Report 12825225 (Version 1)
Quarter: 2016Q4

REPORT INFORMATION
  Report Type: Report from Study
  Country: CA (occurrence: CA)
  Receive Date: 20161006
  Receipt Date: 20161006
  Transmission Date: 20170207
  Serious: Yes (Death)
  Sender: FDA-Public Use
  Company Number: CA-ASTRAZENECA-2016SF04073

PATIENT
  Age: 32443 Day
  Sex: Male

DRUGS (5)
  1. ZOLADEX LA [Suspect]
     Active Substance: GOSERELIN ACETATE
     Indication: PROSTATE CANCER
     Route: 058
     Dates: start: 20150408, end: 20160705
  2. SENNOKOT [Concomitant]
     Dosage: 1-2 TABLET AT BEDTIME AS NEEDED
  3. INDOMETHACIN. [Concomitant]
     Active Substance: INDOMETHACIN
  4. RAMIPRIL. [Concomitant]
     Active Substance: RAMIPRIL
  5. BICALUTAMIDE. [Concomitant]
     Active Substance: BICALUTAMIDE

REACTIONS (1)
  - Death [Fatal]

NARRATIVE: CASE EVENT DATE: 20160906
